FAERS Safety Report 21170812 (Version 4)
Quarter: 2022Q4

REPORT INFORMATION
  Report Type: Report from Study
  Country: US (occurrence: None)
  Receive Date: 20220804
  Receipt Date: 20221025
  Transmission Date: 20230113
  Serious: Yes (Life-Threatening, Other)
  Sender: FDA-Public Use
  Company Number: US-Merck Healthcare KGaA-9337579

PATIENT
  Age: 66 Year
  Sex: Female

DRUGS (3)
  1. REBIF [Suspect]
     Active Substance: INTERFERON BETA-1A
     Indication: Multiple sclerosis
     Route: 058
     Dates: start: 20121009
  2. REBIF [Suspect]
     Active Substance: INTERFERON BETA-1A
     Dosage: LAST YEAR.
     Dates: end: 20220626
  3. REBIF [Suspect]
     Active Substance: INTERFERON BETA-1A
     Route: 058
     Dates: start: 20220803

REACTIONS (8)
  - Coma [Unknown]
  - Gastrointestinal injury [Recovered/Resolved]
  - Procedural complication [Recovered/Resolved]
  - Abdominal operation [Unknown]
  - Akinesia [Not Recovered/Not Resolved]
  - Gastrointestinal scarring [Unknown]
  - Product administration interrupted [Recovered/Resolved]
  - Inappropriate schedule of product administration [Unknown]

NARRATIVE: CASE EVENT DATE: 20220627
